FAERS Safety Report 9963733 (Version 1)
Quarter: 2014Q1

REPORT INFORMATION
  Report Type: Spontaneous
  Country: US (occurrence: US)
  Receive Date: 20140305
  Receipt Date: 20140305
  Transmission Date: 20141002
  Serious: No
  Sender: FDA-Public Use
  Company Number: US-ABBVIE-13P-163-1119014-00

PATIENT
  Age: 62 Year
  Sex: Female

DRUGS (6)
  1. HUMIRA [Suspect]
     Indication: PSORIASIS
     Dates: start: 201212, end: 201212
  2. HUMIRA [Suspect]
     Dates: start: 201212, end: 201212
  3. ATENOLOL [Suspect]
     Indication: ATRIAL FIBRILLATION
  4. WELLBUTRIN [Concomitant]
     Indication: DEPRESSION
  5. PREDNISONE [Concomitant]
     Indication: PSORIASIS
  6. SORIATANE [Concomitant]
     Indication: PSORIASIS
     Dates: start: 201304

REACTIONS (3)
  - Stress [Unknown]
  - Psoriasis [Not Recovered/Not Resolved]
  - Psoriasis [Not Recovered/Not Resolved]
